FAERS Safety Report 12573399 (Version 1)
Quarter: 2016Q3

REPORT INFORMATION
  Report Type: Report from Study
  Country: US (occurrence: US)
  Receive Date: 20160720
  Receipt Date: 20160720
  Transmission Date: 20161109
  Serious: Yes (Death, Other)
  Sender: FDA-Public Use
  Company Number: US-ROCHE-1797726

PATIENT
  Age: 60 Year
  Sex: Male
  Weight: 76.8 kg

DRUGS (3)
  1. VISMODEGIB [Suspect]
     Active Substance: VISMODEGIB
     Indication: PANCREATIC CARCINOMA
     Dosage: LAST TREATMENT DATE 21/SEP/2010
     Route: 048
     Dates: start: 20100713
  2. GEMCITABINE HYDROCHLORIDE. [Suspect]
     Active Substance: GEMCITABINE HYDROCHLORIDE
     Indication: PANCREATIC CARCINOMA
     Dosage: COURSE 2
     Route: 042
     Dates: start: 20100810
  3. VISMODEGIB [Suspect]
     Active Substance: VISMODEGIB
     Route: 048
     Dates: start: 20100921

REACTIONS (4)
  - Platelet count decreased [Unknown]
  - Hypotension [Unknown]
  - Hyponatraemia [Unknown]
  - Death [Fatal]
